FAERS Safety Report 5072260-8 (Version None)
Quarter: 2006Q3

REPORT INFORMATION
  Report Type: 
  Country: None (occurrence: None)
  Receive Date: 20060710
  Receipt Date: 20050915
  Transmission Date: 20061208
  Serious: Yes (Other)
  Sender: FDA-Public Use
  Company Number: PHEH2005US09553

PATIENT
  Age: 62 Year
  Sex: Female

DRUGS (4)
  1. GLEEVEC [Suspect]
     Indication: CHRONIC MYELOID LEUKAEMIA
     Dosage: 400 MG, QD, ORAL
     Route: 048
     Dates: start: 20010701, end: 20050710
  2. IRON (IRON) [Concomitant]
  3. TYLENOL [Concomitant]
  4. ADVIL [Concomitant]

REACTIONS (10)
  - ANAEMIA [None]
  - BLOOD GLUCOSE INCREASED [None]
  - COLITIS [None]
  - CONSTIPATION [None]
  - DYSPEPSIA [None]
  - FACIAL PALSY [None]
  - HEADACHE [None]
  - HERPES ZOSTER [None]
  - MUSCLE SPASMS [None]
  - PAIN [None]
